FAERS Safety Report 25030462 (Version 1)
Quarter: 2025Q1

REPORT INFORMATION
  Report Type: Spontaneous
  Country: CA (occurrence: CA)
  Receive Date: 20250303
  Receipt Date: 20250303
  Transmission Date: 20250409
  Serious: Yes (Hospitalization, Other)
  Sender: ALEXION PHARMACEUTICALS
  Company Number: None

PATIENT
  Age: 53 Year

DRUGS (33)
  1. SEROQUEL [Suspect]
     Active Substance: QUETIAPINE FUMARATE
     Indication: Schizoaffective disorder
     Dosage: 400 MILLIGRAM, QD
     Route: 065
  2. SEROQUEL [Suspect]
     Active Substance: QUETIAPINE FUMARATE
     Indication: Major depression
  3. SEROQUEL [Suspect]
     Active Substance: QUETIAPINE FUMARATE
     Indication: Generalised anxiety disorder
  4. CHLORPROMAZINE [Suspect]
     Active Substance: CHLORPROMAZINE
     Indication: Schizoaffective disorder
     Route: 065
  5. CHLORPROMAZINE [Suspect]
     Active Substance: CHLORPROMAZINE
     Indication: Major depression
  6. CHLORPROMAZINE [Suspect]
     Active Substance: CHLORPROMAZINE
     Indication: Generalised anxiety disorder
  7. CLOZAPINE [Suspect]
     Active Substance: CLOZAPINE
     Indication: Schizoaffective disorder
     Route: 065
  8. CLOZAPINE [Suspect]
     Active Substance: CLOZAPINE
     Indication: Major depression
  9. CLOZAPINE [Suspect]
     Active Substance: CLOZAPINE
     Indication: Generalised anxiety disorder
  10. CLOZAPINE [Suspect]
     Active Substance: CLOZAPINE
     Indication: Schizoaffective disorder
     Route: 065
  11. CLOZAPINE [Suspect]
     Active Substance: CLOZAPINE
     Indication: Major depression
  12. CLOZAPINE [Suspect]
     Active Substance: CLOZAPINE
     Indication: Generalised anxiety disorder
  13. HALOPERIDOL [Suspect]
     Active Substance: HALOPERIDOL
     Indication: Schizoaffective disorder
     Route: 065
  14. HALOPERIDOL [Suspect]
     Active Substance: HALOPERIDOL
     Indication: Major depression
  15. HALOPERIDOL [Suspect]
     Active Substance: HALOPERIDOL
     Indication: Generalised anxiety disorder
  16. LORAZEPAM [Suspect]
     Active Substance: LORAZEPAM
     Indication: Schizoaffective disorder
     Dosage: 1 MILLIGRAM, BID
     Route: 065
  17. LORAZEPAM [Suspect]
     Active Substance: LORAZEPAM
     Indication: Major depression
  18. LORAZEPAM [Suspect]
     Active Substance: LORAZEPAM
     Indication: Generalised anxiety disorder
  19. OLANZAPINE [Suspect]
     Active Substance: OLANZAPINE
     Indication: Schizoaffective disorder
     Dosage: 20 MILLIGRAM, QD
     Route: 065
  20. OLANZAPINE [Suspect]
     Active Substance: OLANZAPINE
     Indication: Major depression
  21. OLANZAPINE [Suspect]
     Active Substance: OLANZAPINE
     Indication: Generalised anxiety disorder
  22. PERPHENAZINE [Suspect]
     Active Substance: PERPHENAZINE
     Indication: Schizoaffective disorder
     Route: 065
  23. PERPHENAZINE [Suspect]
     Active Substance: PERPHENAZINE
     Indication: Major depression
  24. PERPHENAZINE [Suspect]
     Active Substance: PERPHENAZINE
     Indication: Generalised anxiety disorder
  25. SERTRALINE [Suspect]
     Active Substance: SERTRALINE HYDROCHLORIDE
     Indication: Schizoaffective disorder
     Dosage: 175 MILLIGRAM, QD
     Route: 065
  26. SERTRALINE [Suspect]
     Active Substance: SERTRALINE HYDROCHLORIDE
     Indication: Major depression
     Dosage: 200 MILLIGRAM, QD
     Route: 065
  27. SERTRALINE [Suspect]
     Active Substance: SERTRALINE HYDROCHLORIDE
     Indication: Generalised anxiety disorder
  28. THIORIDAZINE [Suspect]
     Active Substance: THIORIDAZINE
     Indication: Schizoaffective disorder
     Route: 065
  29. THIORIDAZINE [Suspect]
     Active Substance: THIORIDAZINE
     Indication: Major depression
  30. THIORIDAZINE [Suspect]
     Active Substance: THIORIDAZINE
     Indication: Generalised anxiety disorder
  31. PALIPERIDONE [Suspect]
     Active Substance: PALIPERIDONE
     Indication: Schizoaffective disorder
     Route: 065
  32. PALIPERIDONE [Suspect]
     Active Substance: PALIPERIDONE
     Indication: Major depression
  33. PALIPERIDONE [Suspect]
     Active Substance: PALIPERIDONE
     Indication: Generalised anxiety disorder

REACTIONS (11)
  - Apraxia [Recovering/Resolving]
  - Drug ineffective [Recovering/Resolving]
  - Dyskinesia [Recovering/Resolving]
  - Dystonia [Recovering/Resolving]
  - Head titubation [Recovering/Resolving]
  - Hyponatraemia [Recovering/Resolving]
  - Movement disorder [Recovering/Resolving]
  - Myoclonus [Recovering/Resolving]
  - Parkinsonism [Recovering/Resolving]
  - Tardive dyskinesia [Recovering/Resolving]
  - Tremor [Recovering/Resolving]
